FAERS Safety Report 8045667-4 (Version None)
Quarter: 2012Q1

REPORT INFORMATION
  Report Type: 
  Country: None (occurrence: None)
  Receive Date: 20120113
  Receipt Date: 20120111
  Transmission Date: 20120608
  Serious: Yes (Death)
  Sender: FDA-Public Use
  Company Number: US-PFIZER INC-2012009136

PATIENT
  Sex: Female

DRUGS (2)
  1. ZOLOFT [Suspect]
  2. GEODON [Suspect]

REACTIONS (1)
  - DEATH [None]
